FAERS Safety Report 6152626-5 (Version None)
Quarter: 2009Q2

REPORT INFORMATION
  Report Type: 
  Country: None (occurrence: None)
  Receive Date: 20090413
  Receipt Date: 20090409
  Transmission Date: 20091009
  Serious: Yes (Hospitalization)
  Sender: FDA-Public Use
  Company Number: US-ROXANE LABORATORIES, INC.-2009-RO-00370RO

PATIENT
  Age: 16 Month
  Sex: Female
  Weight: 7 kg

DRUGS (15)
  1. DEXAMETHASONE 4MG TAB [Suspect]
     Dates: start: 20081230
  2. DEXAMETHASONE 4MG TAB [Suspect]
  3. MERCAPTOPURINE [Suspect]
  4. MERCAPTOPURINE [Suspect]
     Dates: start: 20090106
  5. LESTAURTINIB [Suspect]
     Indication: ACUTE LYMPHOCYTIC LEUKAEMIA
     Route: 048
     Dates: start: 20081231, end: 20090104
  6. LESTAURTINIB [Suspect]
     Dates: start: 20080709
  7. METHOTREXATE [Suspect]
     Route: 037
     Dates: start: 20081230
  8. METHOTREXATE [Suspect]
     Route: 042
     Dates: start: 20090106
  9. VINCRISTINE SULFATE [Suspect]
     Dates: start: 20081230
  10. CAPTOPRIL [Concomitant]
     Indication: HYPERTENSION
  11. ETOPOSIDE [Concomitant]
  12. CYCLOPHOSPHAMIDE [Concomitant]
  13. CYTARABINE [Concomitant]
     Dates: start: 20081230
  14. HYDROCORTISONE [Concomitant]
     Dates: start: 20081230
  15. MESNA [Concomitant]
     Dates: start: 20080101

REACTIONS (11)
  - CARDIAC FAILURE CONGESTIVE [None]
  - COLITIS [None]
  - DIARRHOEA [None]
  - GASTROENTERITIS NOROVIRUS [None]
  - HYPERTENSION [None]
  - HYPOXIA [None]
  - LEFT VENTRICULAR DYSFUNCTION [None]
  - METAPNEUMOVIRUS INFECTION [None]
  - PNEUMATOSIS [None]
  - PNEUMONIA [None]
  - VOMITING [None]
